FAERS Safety Report 8958275 (Version 1)
Quarter: 2012Q4

REPORT INFORMATION
  Report Type: 
  Country: CH (occurrence: CH)
  Receive Date: 20121211
  Receipt Date: 20121211
  Transmission Date: 20130627
  Serious: Yes (Disabling)
  Sender: FDA-Public Use
  Company Number: CH-BAYER-2012-125705

PATIENT
  Sex: Female

DRUGS (2)
  1. QLAIRA [Suspect]
     Dosage: UNK
     Route: 048
  2. NUVARING [Suspect]
     Dosage: UNK
     Route: 067

REACTIONS (4)
  - Hypersensitivity [Not Recovered/Not Resolved]
  - Eczema [Not Recovered/Not Resolved]
  - Pruritus [Not Recovered/Not Resolved]
  - Rash [Not Recovered/Not Resolved]
